FAERS Safety Report 9868530 (Version 2)
Quarter: 2014Q1

REPORT INFORMATION
  Report Type: Spontaneous
  Country: US (occurrence: US)
  Receive Date: 20140204
  Receipt Date: 20140205
  Transmission Date: 20141002
  Serious: No
  Sender: FDA-Public Use
  Company Number: US-TEVA-459855USA

PATIENT
  Age: 53 Year
  Sex: Female
  Weight: 44.49 kg

DRUGS (2)
  1. PROAIR HFA [Suspect]
     Indication: COUGH
     Dates: start: 20140127
  2. PROAIR HFA [Suspect]
     Indication: RESPIRATORY DISORDER

REACTIONS (7)
  - Cough [Not Recovered/Not Resolved]
  - Dyspnoea [Not Recovered/Not Resolved]
  - Dyspnoea [Not Recovered/Not Resolved]
  - Dyspnoea [Not Recovered/Not Resolved]
  - Drug ineffective [Unknown]
  - Wrong technique in drug usage process [Unknown]
  - Device malfunction [Not Recovered/Not Resolved]
